FAERS Safety Report 16853685 (Version 1)
Quarter: 2019Q4

REPORT INFORMATION
  Report Type: Spontaneous
  Country: US (occurrence: US)
  Receive Date: 20190925
  Receipt Date: 20190925
  Transmission Date: 20200122
  Serious: Yes (Other)
  Sender: FDA-Public Use
  Company Number: None

PATIENT
  Age: 52 Year
  Sex: Male
  Weight: 103.5 kg

DRUGS (2)
  1. LEMTRADA [Concomitant]
     Active Substance: ALEMTUZUMAB
     Dates: start: 20150601, end: 20160601
  2. LEMTRADA [Suspect]
     Active Substance: ALEMTUZUMAB
     Indication: MULTIPLE SCLEROSIS
     Dosage: ?          OTHER FREQUENCY:5 DAYS, 3 DAYS;?
     Route: 041
     Dates: start: 20150601, end: 20160601

REACTIONS (2)
  - Impaired healing [None]
  - CD4 lymphocytes decreased [None]

NARRATIVE: CASE EVENT DATE: 20190812
